FAERS Safety Report 17183693 (Version 1)
Quarter: 2019Q4

REPORT INFORMATION
  Report Type: Spontaneous
  Country: MY (occurrence: MY)
  Receive Date: 20191220
  Receipt Date: 20191220
  Transmission Date: 20200122
  Serious: Yes (Other)
  Sender: FDA-Public Use
  Company Number: MY-PFIZER INC-2019544254

PATIENT
  Age: 62 Year
  Sex: Male

DRUGS (1)
  1. LEVOPHED [Suspect]
     Active Substance: NOREPINEPHRINE BITARTRATE
     Indication: SEPTIC SHOCK
     Dosage: 4 MG, UNK
     Route: 041

REACTIONS (2)
  - Dyspnoea [Recovered/Resolved]
  - Swelling [Recovered/Resolved]
